FAERS Safety Report 7315167-5 (Version None)
Quarter: 2011Q1

REPORT INFORMATION
  Report Type: 
  Country: None (occurrence: None)
  Receive Date: 20110225
  Receipt Date: 20110216
  Transmission Date: 20110831
  Serious: Yes (Life-Threatening, Hospitalization)
  Sender: FDA-Public Use
  Company Number: DE-NOVOPROD-321231

PATIENT
  Age: 72 Year
  Sex: Male
  Weight: 89 kg

DRUGS (6)
  1. SPIRONOLACTONE [Concomitant]
     Dosage: UNK
     Route: 048
     Dates: start: 20090223
  2. LISINOPRIL [Concomitant]
     Dosage: UNK
     Route: 048
     Dates: start: 20080101
  3. ALLOPURINOL [Concomitant]
     Dosage: UNK
     Route: 048
     Dates: start: 19850101
  4. FUROSEMID                          /00032601/ [Concomitant]
     Dosage: 40 MG, BID
     Dates: start: 20090223
  5. NOVONORM [Suspect]
     Dosage: 0.5 MG, QD
     Route: 048
     Dates: start: 20080909, end: 20100503
  6. MARCUMAR [Concomitant]
     Route: 048

REACTIONS (2)
  - TRAUMATIC BRAIN INJURY [None]
  - HYPOGLYCAEMIC UNCONSCIOUSNESS [None]
